FAERS Safety Report 5026269-0 (Version None)
Quarter: 2006Q2

REPORT INFORMATION
  Report Type: 
  Country: None (occurrence: None)
  Receive Date: 20060608
  Receipt Date: 20060526
  Transmission Date: 20061013
  Serious: Yes (Hospitalization)
  Sender: FDA-Public Use
  Company Number: 2006059162

PATIENT
  Age: 69 Year
  Sex: Male
  Weight: 85 kg

DRUGS (6)
  1. SUTENT [Suspect]
     Indication: METASTATIC RENAL CELL CARCINOMA
     Dosage: 50 MG (50 MG, CYCLIC), ORAL; 37.5 MG (37.5 MG, 1 IN 1 D), ORAL
     Route: 049
     Dates: start: 20060414
  2. SUTENT [Suspect]
     Indication: METASTATIC RENAL CELL CARCINOMA
     Dosage: 50 MG (50 MG, CYCLIC), ORAL; 37.5 MG (37.5 MG, 1 IN 1 D), ORAL
     Route: 049
     Dates: start: 20060501
  3. ATORVASTATIN CALCIUM [Concomitant]
  4. ATENOLOL [Concomitant]
  5. LANSOPRAZOLE [Concomitant]
  6. ALLOPURINOL [Concomitant]

REACTIONS (4)
  - HEPATITIS [None]
  - NEUTROPHIL COUNT DECREASED [None]
  - PLATELET COUNT DECREASED [None]
  - WHITE BLOOD CELL COUNT DECREASED [None]
